FAERS Safety Report 24135896 (Version 1)
Quarter: 2024Q3

REPORT INFORMATION
  Report Type: Other
  Country: IT (occurrence: IT)
  Receive Date: 20240725
  Receipt Date: 20240725
  Transmission Date: 20241016
  Serious: Yes (Life-Threatening)
  Sender: B BRAUN
  Company Number: IT-B.Braun Medical Inc.-2159546

PATIENT
  Age: 81 Year
  Sex: Female

DRUGS (5)
  1. HEPARIN SODIUM IN DEXTROSE [Suspect]
     Active Substance: HEPARIN SODIUM
     Indication: Thrombosis
  2. WARFARIN [Concomitant]
     Active Substance: WARFARIN
  3. Inotropic support [Concomitant]
  4. Empiric antibiotic therapy [Concomitant]
  5. NOAC [Concomitant]

REACTIONS (1)
  - Drug ineffective [Unknown]
